FAERS Safety Report 9701942 (Version 2)
Quarter: 2014Q1

REPORT INFORMATION
  Report Type: Spontaneous
  Country: FR (occurrence: FR)
  Receive Date: 20131121
  Receipt Date: 20140211
  Transmission Date: 20141002
  Serious: Yes (Hospitalization)
  Sender: FDA-Public Use
  Company Number: FR-PFIZER INC-2013327593

PATIENT
  Age: 57 Year
  Sex: Female

DRUGS (10)
  1. DALACINE [Suspect]
     Indication: ENDOCARDITIS STAPHYLOCOCCAL
     Dosage: 1800 MG PER DAY
     Route: 048
     Dates: start: 201308
  2. BRISTOPEN [Suspect]
     Indication: ENDOCARDITIS STAPHYLOCOCCAL
     Dosage: 4.5 G PER DAY
     Route: 042
     Dates: start: 201308
  3. INEXIUM /01479302/ [Concomitant]
     Dosage: 40 MG, 1X/DAY
     Route: 048
  4. KAYEXALATE [Concomitant]
     Indication: HYPERKALAEMIA
     Dosage: 3 DF, DAILY
     Route: 048
  5. OROCAL VITAMIN D3 [Concomitant]
     Indication: HYPOCALCAEMIA
     Dosage: 500 MG, DAILY
     Route: 048
  6. CORDARONE [Concomitant]
     Indication: ARRHYTHMIA
     Dosage: 100 MG, ALTERNATE DAY
     Route: 048
  7. FOSRENOL [Concomitant]
     Indication: BLOOD PHOSPHORUS INCREASED
     Dosage: 3 G, DAILY
     Route: 048
  8. COUMADINE [Concomitant]
     Dosage: 2 MG, DAILY
     Route: 048
  9. EMLA [Concomitant]
     Indication: LOCAL ANAESTHESIA
     Dosage: 2 DF, THRICE WEEKLY
  10. MIMPARA [Concomitant]
     Indication: HYPERPARATHYROIDISM
     Dosage: 30 MG, DAILY
     Route: 048

REACTIONS (1)
  - Anaemia [Recovered/Resolved]
